FAERS Safety Report 26074380 (Version 1)
Quarter: 2025Q4

REPORT INFORMATION
  Report Type: Report from Study
  Country: IN (occurrence: IN)
  Receive Date: 20251121
  Receipt Date: 20251121
  Transmission Date: 20260117
  Serious: Yes (Hospitalization, Other)
  Sender: DAIICHI
  Company Number: IN-AstraZeneca-CH-00992419A

PATIENT
  Sex: Female
  Weight: 30 kg

DRUGS (1)
  1. ENHERTU [Suspect]
     Active Substance: FAM-TRASTUZUMAB DERUXTECAN-NXKI
     Indication: Oesophageal adenocarcinoma
     Dosage: 100 MG, ONCE EVERY 3 WK
     Route: 041

REACTIONS (3)
  - Jaundice [Unknown]
  - Liver injury [Unknown]
  - Platelet count decreased [Unknown]
